FAERS Safety Report 6219263-5 (Version None)
Quarter: 2009Q2

REPORT INFORMATION
  Report Type: 
  Country: None (occurrence: None)
  Receive Date: 20090609
  Receipt Date: 20090601
  Transmission Date: 20091009
  Serious: Yes (Other)
  Sender: FDA-Public Use
  Company Number: US-ROCHE-635979

PATIENT
  Age: 62 Year
  Sex: Female

DRUGS (9)
  1. BONIVA [Suspect]
     Indication: OSTEOPOROSIS
     Route: 048
     Dates: start: 20071201, end: 20081201
  2. ASPIRIN [Concomitant]
     Dosage: DRUG: BABY ASPIRIN
  3. CALCIUM [Concomitant]
     Dosage: FREQUENCY: DAILY
  4. VITAMINE D [Concomitant]
     Dosage: RUG VITAMIN D, FREQUENCY: DAILY
  5. LISINOPRIL [Concomitant]
  6. GLIPIZIDE [Concomitant]
     Dosage: DRUG: GLIPICIDE
  7. METFORMIN HYDROCHLORIDE [Concomitant]
  8. AMLODIPINE [Concomitant]
     Dosage: DOSE: 10 MHG DAILY
  9. LIPITOR [Concomitant]

REACTIONS (6)
  - ABDOMINAL PAIN [None]
  - DIVERTICULITIS [None]
  - ENTERITIS [None]
  - GASTRIC ULCER [None]
  - GASTRITIS [None]
  - HIATUS HERNIA [None]
